FAERS Safety Report 20374621 (Version 2)
Quarter: 2022Q1

REPORT INFORMATION
  Report Type: Spontaneous
  Country: JP (occurrence: JP)
  Receive Date: 20220125
  Receipt Date: 20220218
  Transmission Date: 20220423
  Serious: Yes (Hospitalization, Other)
  Sender: FDA-Public Use
  Company Number: JP-ONO-2022JP001636

PATIENT
  Age: 6 Decade
  Sex: Male

DRUGS (3)
  1. OPDIVO [Suspect]
     Active Substance: NIVOLUMAB
     Indication: Metastatic renal cell carcinoma
     Dosage: UNK
     Route: 041
  2. OPDIVO [Suspect]
     Active Substance: NIVOLUMAB
     Dosage: UNK
     Route: 065
  3. CABOZANTINIB S-MALATE [Suspect]
     Active Substance: CABOZANTINIB S-MALATE
     Indication: Metastatic renal cell carcinoma
     Dosage: 40 MG
     Route: 048

REACTIONS (2)
  - Gastrointestinal haemorrhage [Recovered/Resolved]
  - Malignant neoplasm progression [Unknown]
